FAERS Safety Report 13043010 (Version 1)
Quarter: 2016Q4

REPORT INFORMATION
  Report Type: Spontaneous
  Country: DE (occurrence: DE)
  Receive Date: 20161219
  Receipt Date: 20161219
  Transmission Date: 20170207
  Serious: Yes (Other)
  Sender: FDA-Public Use
  Company Number: DE-MYLANLABS-2016M1056142

PATIENT

DRUGS (2)
  1. CLOZAPINE MYLAN [Suspect]
     Active Substance: CLOZAPINE
     Dosage: 500 MG, QD
     Route: 065
  2. CLOZAPINE MYLAN [Suspect]
     Active Substance: CLOZAPINE
     Indication: PSYCHOTIC DISORDER
     Dosage: UNK
     Route: 065

REACTIONS (10)
  - Eosinophilia [Unknown]
  - Cardiomyopathy [Recovered/Resolved]
  - Withdrawal syndrome [Recovered/Resolved]
  - Vomiting [Unknown]
  - Hypertension [Recovered/Resolved]
  - C-reactive protein increased [Unknown]
  - Regurgitation [Recovered/Resolved]
  - Sinus tachycardia [Recovered/Resolved]
  - Nausea [Unknown]
  - Differential white blood cell count abnormal [Unknown]
